FAERS Safety Report 7204312-8 (Version None)
Quarter: 2010Q4

REPORT INFORMATION
  Report Type: 
  Country: None (occurrence: None)
  Receive Date: 20101220
  Receipt Date: 20101129
  Transmission Date: 20110411
  Serious: Yes (Death)
  Sender: FDA-Public Use
  Company Number: 2010NA000058

PATIENT
  Age: 82 Year
  Sex: Male

DRUGS (6)
  1. CAMBIA [Suspect]
  2. METAMIZOLE (METAMIZOLE) [Suspect]
  3. CARBAMAZEPINE [Suspect]
     Dosage: 300 MG;QD
  4. KETOPROFEN [Suspect]
  5. CON MEDS [Concomitant]
  6. PREV MEDS [Concomitant]

REACTIONS (4)
  - AGRANULOCYTOSIS [None]
  - DYSPHAGIA [None]
  - PYREXIA [None]
  - SEPTIC SHOCK [None]
